FAERS Safety Report 12832093 (Version 1)
Quarter: 2016Q4

REPORT INFORMATION
  Report Type: Report from Study
  Country: BR (occurrence: BR)
  Receive Date: 20161010
  Receipt Date: 20161010
  Transmission Date: 20170207
  Serious: Yes (Other)
  Sender: FDA-Public Use
  Company Number: PHHY2016BR138885

PATIENT
  Sex: Male
  Weight: 75 kg

DRUGS (1)
  1. EXELON PATCH [Suspect]
     Active Substance: RIVASTIGMINE
     Indication: DEMENTIA
     Dosage: 13.3 MG, QD (PATCH 15 CM2)
     Route: 062
     Dates: start: 201603

REACTIONS (1)
  - Neurosyphilis [Unknown]
